FAERS Safety Report 11561831 (Version 1)
Quarter: 2015Q3

REPORT INFORMATION
  Report Type: Spontaneous
  Country: US (occurrence: US)
  Receive Date: 20150916
  Receipt Date: 20150916
  Transmission Date: 20151125
  Serious: No
  Sender: FDA-Public Use
  Company Number: US-ELI_LILLY_AND_COMPANY-US200811001982

PATIENT
  Age: 76 Year
  Sex: Female

DRUGS (7)
  1. CITRACAL [Concomitant]
     Active Substance: CALCIUM CITRATE
     Dosage: 1 D/F, DAILY (1/D)
  2. NORVASC [Concomitant]
     Active Substance: AMLODIPINE BESYLATE
  3. FORTEO [Suspect]
     Active Substance: TERIPARATIDE
     Indication: OSTEOPOROSIS
     Dosage: 20 UG, DAILY (1/D)
     Dates: start: 200611, end: 20081104
  4. TOPROL XL [Concomitant]
     Active Substance: METOPROLOL SUCCINATE
  5. PREMARIN [Concomitant]
     Active Substance: ESTROGENS, CONJUGATED
  6. ULTRAM [Concomitant]
     Active Substance: TRAMADOL HYDROCHLORIDE
  7. LUNESTA [Concomitant]
     Active Substance: ESZOPICLONE

REACTIONS (9)
  - Pain [Recovered/Resolved]
  - Ocular hyperaemia [Unknown]
  - Joint swelling [Recovered/Resolved]
  - Cataract [Recovering/Resolving]
  - Arthralgia [Unknown]
  - Exostosis [Unknown]
  - Eye pruritus [Unknown]
  - Skin cancer [Unknown]
  - Peripheral swelling [Recovering/Resolving]

NARRATIVE: CASE EVENT DATE: 2008
